FAERS Safety Report 16688891 (Version 2)
Quarter: 2019Q3

REPORT INFORMATION
  Report Type: Spontaneous
  Country: JP (occurrence: JP)
  Receive Date: 20190809
  Receipt Date: 20190913
  Transmission Date: 20191004
  Serious: Yes (Hospitalization)
  Sender: FDA-Public Use
  Company Number: JP-009507513-1908JPN000450J

PATIENT
  Age: 80 Year
  Sex: Female
  Weight: 41 kg

DRUGS (8)
  1. TAKECAB [Concomitant]
     Active Substance: VONOPRAZAN FUMURATE
     Dosage: 10 MILLIGRAM,UNK
     Route: 048
     Dates: start: 20180903
  2. DESMOPRESSIN ACETATE. [Concomitant]
     Active Substance: DESMOPRESSIN ACETATE
     Dosage: UNK
     Route: 048
  3. BELSOMRA [Suspect]
     Active Substance: SUVOREXANT
     Indication: INSOMNIA
     Dosage: 15 MILLIGRAM/DAY
     Route: 048
     Dates: start: 20190422, end: 20190708
  4. DIMETHICONE. [Concomitant]
     Active Substance: DIMETHICONE
     Dosage: 40 MILLIGRAM,UNK
     Route: 048
     Dates: start: 20180903, end: 20190708
  5. TELMISARTAN. [Concomitant]
     Active Substance: TELMISARTAN
     Dosage: 40 MILLIGRAM,UNK
     Route: 048
     Dates: end: 20190708
  6. EVISTA [Concomitant]
     Active Substance: RALOXIFENE HYDROCHLORIDE
     Dosage: 60 MILLIGRAM,UNK
     Route: 048
     Dates: start: 201807, end: 20190708
  7. AMLODIPINE [Concomitant]
     Active Substance: AMLODIPINE BESYLATE
     Dosage: 5 MILLIGRAM,UNK
     Route: 048
     Dates: end: 20190708
  8. MOSAPRIDE CITRATE HYDRATE [Concomitant]
     Active Substance: MOSAPRIDE CITRATE DIHYDRATE
     Dosage: UNK
     Route: 065
     Dates: start: 20180903

REACTIONS (2)
  - Decreased appetite [Recovered/Resolved]
  - Abdominal discomfort [Recovering/Resolving]

NARRATIVE: CASE EVENT DATE: 201904
